FAERS Safety Report 8996761 (Version 1)
Quarter: 2012Q4

REPORT INFORMATION
  Report Type: Spontaneous
  Country: US (occurrence: None)
  Receive Date: 20121228
  Receipt Date: 20121228
  Transmission Date: 20130627
  Serious: Yes (Life-Threatening)
  Sender: FDA-Public Use
  Company Number: None

PATIENT
  Age: 69 Year
  Sex: Female
  Weight: 56.7 kg

DRUGS (1)
  1. NOVOLIN 70/30 [Suspect]
     Indication: TYPE I DIABETES MELLITUS
     Dosage: AM + PM
     Dates: start: 201211

REACTIONS (2)
  - Blood glucose increased [None]
  - Product quality issue [None]
